FAERS Safety Report 23585464 (Version 2)
Quarter: 2024Q1

REPORT INFORMATION
  Report Type: Report from Study
  Country: AR (occurrence: AR)
  Receive Date: 20240301
  Receipt Date: 20240311
  Transmission Date: 20240409
  Serious: Yes (Hospitalization)
  Sender: FDA-Public Use
  Company Number: AR-002147023-NVSC2024AR043883

PATIENT
  Sex: Male

DRUGS (2)
  1. COSENTYX [Suspect]
     Active Substance: SECUKINUMAB
     Indication: Hidradenitis
     Dosage: 300 MG, Q2W
     Route: 058
     Dates: start: 20231117
  2. COSENTYX [Suspect]
     Active Substance: SECUKINUMAB
     Dosage: 600 MG, Q2W
     Route: 058

REACTIONS (3)
  - Localised infection [Recovering/Resolving]
  - Gait inability [Recovering/Resolving]
  - Incorrect dose administered [Unknown]
